FAERS Safety Report 11696967 (Version 2)
Quarter: 2015Q4

REPORT INFORMATION
  Report Type: Spontaneous
  Country: US (occurrence: US)
  Receive Date: 20151104
  Receipt Date: 20151208
  Transmission Date: 20160304
  Serious: No
  Sender: FDA-Public Use
  Company Number: US-ASTRAZENECA-2015SF03460

PATIENT
  Sex: Female
  Weight: 31.8 kg

DRUGS (2)
  1. PULMICORT FLEXHALER [Suspect]
     Active Substance: BUDESONIDE
     Indication: ASTHMA
     Dosage: 180 UG 2 PUFFS TWO TIMES A DAY
     Route: 055
     Dates: start: 201510
  2. PULMICORT FLEXHALER [Suspect]
     Active Substance: BUDESONIDE
     Indication: ASTHMA
     Dosage: 180 UG 2 PUFFS TWO TIMES A DAY
     Route: 055
     Dates: start: 201310

REACTIONS (6)
  - Product quality issue [Unknown]
  - Hypopnoea [Unknown]
  - Dyspnoea [Unknown]
  - Product taste abnormal [Unknown]
  - Drug dose omission [Unknown]
  - Wrong device used [Unknown]
